FAERS Safety Report 25254259 (Version 4)
Quarter: 2025Q4

REPORT INFORMATION
  Report Type: Report from Study
  Country: GB (occurrence: GB)
  Receive Date: 20250430
  Receipt Date: 20251209
  Transmission Date: 20260117
  Serious: Yes (Hospitalization, Other)
  Sender: TAKEDA
  Company Number: GB-TAKEDA-2024TUS107008

PATIENT
  Age: 62 Year
  Sex: Male

DRUGS (2)
  1. VEDOLIZUMAB [Suspect]
     Active Substance: VEDOLIZUMAB
     Indication: Crohn^s disease
     Dosage: 108 MILLIGRAM
  2. VEDOLIZUMAB [Suspect]
     Active Substance: VEDOLIZUMAB

REACTIONS (8)
  - Gastrointestinal infection [Unknown]
  - Kidney infection [Unknown]
  - Ear infection [Unknown]
  - Clostridium difficile infection [Unknown]
  - Gastroenteritis [Unknown]
  - Productive cough [Unknown]
  - Tympanic membrane perforation [Unknown]
  - Rhinorrhoea [Unknown]
